FAERS Safety Report 20818051 (Version 1)
Quarter: 2022Q2

REPORT INFORMATION
  Report Type: Spontaneous
  Country: US (occurrence: US)
  Receive Date: 20220512
  Receipt Date: 20220512
  Transmission Date: 20220720
  Serious: No
  Sender: FDA-Public Use
  Company Number: US-PFIZER INC-202101646753

PATIENT
  Age: 97 Year
  Sex: Female

DRUGS (1)
  1. ACCUPRIL [Suspect]
     Active Substance: QUINAPRIL HYDROCHLORIDE
     Indication: Sinus disorder
     Dosage: UNK ( PUT TWO DROPS OF ACCUPRIL IN HER NOSTRIL FOR HER SINUS, INSTEAD OF ONE DROP)

REACTIONS (3)
  - Off label use [Unknown]
  - Nasal congestion [Unknown]
  - Dry mouth [Unknown]
